FAERS Safety Report 17978516 (Version 1)
Quarter: 2020Q3

REPORT INFORMATION
  Report Type: Spontaneous
  Country: DE (occurrence: DE)
  Receive Date: 20200703
  Receipt Date: 20200703
  Transmission Date: 20201103
  Serious: Yes (Hospitalization)
  Sender: FDA-Public Use
  Company Number: DE-MICRO LABS LIMITED-ML2020-01882

PATIENT
  Age: 77 Year
  Sex: Female
  Weight: 50.2 kg

DRUGS (13)
  1. AMITRIPTYLINE [Suspect]
     Active Substance: AMITRIPTYLINE
     Dosage: 90 MG, 0?0?1?0
  2. TRAMADOL. [Suspect]
     Active Substance: TRAMADOL
     Dosage: 100 MG, 1?1?1?1
  3. BISOPROLOL [Concomitant]
     Active Substance: BISOPROLOL
     Dosage: 2.5 MG, 1?0?0?0
  4. AMOXICILLIN/CLAVULANIC ACID [Suspect]
     Active Substance: AMOXICILLIN\CLAVULANIC ACID
     Dosage: 875/125 MG, TWICE DAILY SINCE 1002202020
  5. GABAPENTIN. [Suspect]
     Active Substance: GABAPENTIN
     Dosage: 300 MG, 0?0?1?0
  6. METAMIZOL [Concomitant]
     Active Substance: METAMIZOLE SODIUM
     Dosage: 500 MG, 1?1?1?0
  7. METOCLOPRAMID [Concomitant]
     Active Substance: METOCLOPRAMIDE
     Dosage: 10 MG, 1?0?1?0
  8. PANTOPRAZOL [Concomitant]
     Active Substance: PANTOPRAZOLE SODIUM
     Dosage: 40 MG, 1?0?0?0
  9. MELPERON [Suspect]
     Active Substance: MELPERONE
     Dosage: 50 MG, 0?0?0?2
  10. COLECALCIFEROL (VITAMIN D) [Concomitant]
     Dosage: 1000 IE, 1?0?0?0
  11. PREDNISOLONE. [Concomitant]
     Active Substance: PREDNISOLONE
     Dosage: 20 MG, 1?0?0?0
  12. TORASEMID [Concomitant]
     Active Substance: TORSEMIDE
     Dosage: 20 MG, 1?0?0?0
  13. ZOPICLON [Suspect]
     Active Substance: ZOPICLONE
     Dosage: 7.5 MG, 0?0?0?1.5

REACTIONS (4)
  - Hypotension [Unknown]
  - Peripheral circulatory failure [Unknown]
  - Hypothermia [Unknown]
  - Somnolence [Unknown]
